FAERS Safety Report 23179881 (Version 1)
Quarter: 2023Q4

REPORT INFORMATION
  Report Type: Report from Study
  Country: US (occurrence: US)
  Receive Date: 20231114
  Receipt Date: 20231114
  Transmission Date: 20240109
  Serious: No
  Sender: FDA-Public Use
  Company Number: US-AstraZeneca-CH-00500827A

PATIENT
  Sex: Female

DRUGS (1)
  1. SOLIRIS [Suspect]
     Active Substance: ECULIZUMAB
     Indication: Product used for unknown indication
     Dosage: UNK
     Route: 065

REACTIONS (10)
  - Pain [Not Recovered/Not Resolved]
  - Asthenia [Not Recovered/Not Resolved]
  - Contusion [Unknown]
  - Gait disturbance [Unknown]
  - Back pain [Unknown]
  - Throat tightness [Unknown]
  - Dyspnoea [Unknown]
  - Stress [Unknown]
  - Arthralgia [Unknown]
  - Fall [Unknown]
